FAERS Safety Report 16678391 (Version 1)
Quarter: 2019Q3

REPORT INFORMATION
  Report Type: Spontaneous
  Country: US (occurrence: US)
  Receive Date: 20190806
  Receipt Date: 20190806
  Transmission Date: 20191004
  Serious: Yes (Hospitalization)
  Sender: FDA-Public Use
  Company Number: None

PATIENT
  Age: 51 Year
  Sex: Female
  Weight: 57.4 kg

DRUGS (4)
  1. OXYCODONE 5 MG Q6H PRN PAIN [Concomitant]
  2. ASPIRIN 81 MG DAILY [Concomitant]
  3. OPDIVO [Suspect]
     Active Substance: NIVOLUMAB
     Indication: ADRENAL GLAND CANCER
     Route: 042
  4. LISINOPRIL 5 MG DAILY [Concomitant]

REACTIONS (2)
  - Pancreatitis [None]
  - Chest pain [None]

NARRATIVE: CASE EVENT DATE: 20190712
